FAERS Safety Report 15984857 (Version 1)
Quarter: 2019Q1

REPORT INFORMATION
  Report Type: Spontaneous
  Country: US (occurrence: US)
  Receive Date: 20190219
  Receipt Date: 20190219
  Transmission Date: 20190418
  Serious: Yes (Other)
  Sender: FDA-Public Use
  Company Number: None

PATIENT
  Age: 76 Year
  Sex: Female
  Weight: 80.28 kg

DRUGS (17)
  1. NORCO [Concomitant]
     Active Substance: ACETAMINOPHEN\HYDROCODONE BITARTRATE
  2. AMICAR [Concomitant]
     Active Substance: AMINOCAPROIC ACID
  3. AMLODIPINE [Concomitant]
     Active Substance: AMLODIPINE BESYLATE
  4. NITROGLYCERIN. [Concomitant]
     Active Substance: NITROGLYCERIN
  5. BACTRIM [Concomitant]
     Active Substance: SULFAMETHOXAZOLE\TRIMETHOPRIM
  6. MOMETASONE [Concomitant]
     Active Substance: MOMETASONE
  7. CARAFATE [Concomitant]
     Active Substance: SUCRALFATE
  8. GABAPENTIN. [Concomitant]
     Active Substance: GABAPENTIN
  9. TRANEXAMIC ACID. [Suspect]
     Active Substance: TRANEXAMIC ACID
     Indication: THROMBOCYTOPENIA
     Dosage: ?          OTHER FREQUENCY:1 EVERY 4 HOURS;?
     Route: 048
     Dates: start: 20180828
  10. ATENOLOL. [Concomitant]
     Active Substance: ATENOLOL
  11. MVI [Concomitant]
     Active Substance: VITAMINS
  12. DIFLUNISAL. [Concomitant]
     Active Substance: DIFLUNISAL
  13. PANTOPRAZOLE [Concomitant]
     Active Substance: PANTOPRAZOLE
  14. PLAQUENIL [Concomitant]
     Active Substance: HYDROXYCHLOROQUINE SULFATE
  15. PLAVIX [Concomitant]
     Active Substance: CLOPIDOGREL BISULFATE
  16. SELENIUM SULFIDE. [Concomitant]
     Active Substance: SELENIUM SULFIDE
  17. ASPIRIN. [Concomitant]
     Active Substance: ASPIRIN

REACTIONS (1)
  - Abdominal pain upper [None]

NARRATIVE: CASE EVENT DATE: 20190219
